FAERS Safety Report 8000322-1 (Version None)
Quarter: 2011Q4

REPORT INFORMATION
  Report Type: 
  Country: None (occurrence: None)
  Receive Date: 20111222
  Receipt Date: 20111214
  Transmission Date: 20120403
  Serious: Yes (Hospitalization)
  Sender: FDA-Public Use
  Company Number: PL-ASTELLAS-2011US008539

PATIENT
  Sex: Female
  Weight: 13 kg

DRUGS (2)
  1. NONE [Concomitant]
     Indication: PRODUCT USED FOR UNKNOWN INDICATION
     Dosage: UNK
     Route: 065
  2. TACROLIMUS [Suspect]
     Indication: DERMATITIS ATOPIC
     Dosage: 0.03 %, UID/QD
     Route: 061
     Dates: start: 20090825

REACTIONS (3)
  - ECZEMA HERPETICUM [None]
  - SKIN BACTERIAL INFECTION [None]
  - ANAEMIA [None]
